FAERS Safety Report 8303639-6 (Version None)
Quarter: 2012Q2

REPORT INFORMATION
  Report Type: 
  Country: None (occurrence: None)
  Receive Date: 20120423
  Receipt Date: 20120417
  Transmission Date: 20120825
  Serious: Yes (Other)
  Sender: FDA-Public Use
  Company Number: JP-PFIZER INC-2012077627

PATIENT
  Age: 61 Year
  Sex: Female
  Weight: 46 kg

DRUGS (10)
  1. PREDNISOLONE [Concomitant]
     Indication: ADRENAL INSUFFICIENCY
     Dosage: 5 MG, 1X/DAY
     Route: 048
     Dates: start: 20080101
  2. RASILEZ [Concomitant]
     Indication: HYPERTENSION
     Dosage: 150 MG, 2X/DAY
     Route: 048
     Dates: start: 20100101
  3. LYRICA [Suspect]
     Indication: NEURALGIA
     Dosage: 25 MG, 3X/DAY
     Route: 048
     Dates: start: 20120312, end: 20120326
  4. LEVOCARNITINE [Concomitant]
     Indication: CARNITINE DEFICIENCY
     Dosage: 300 MG, 1X/DAY
     Route: 048
     Dates: start: 20120112
  5. EPLERENONE [Concomitant]
     Indication: HYPERTENSION
     Dosage: 50 MG, 2X/DAY
     Route: 048
     Dates: start: 20100101
  6. FLORINEF [Concomitant]
     Indication: ADRENAL INSUFFICIENCY
     Dosage: 0.1 MG, 2X/DAY
     Route: 048
     Dates: start: 20100101
  7. MEXITIL [Concomitant]
     Indication: NEURALGIA
     Dosage: 50 MG, 3X/DAY
     Route: 048
     Dates: start: 20120312
  8. ZANTAC [Concomitant]
     Indication: PROPHYLAXIS AGAINST GASTROINTESTINAL ULCER
     Dosage: 75 MG, 1X/DAY
     Route: 048
     Dates: start: 20080101
  9. GOSHAJINKIGAN [Concomitant]
     Indication: NEURALGIA
     Dosage: 1 DF, 3X/DAY
     Route: 048
     Dates: start: 20120312
  10. JUZENTAIHOTO [Concomitant]
     Indication: NEURALGIA
     Dosage: 1 DF, 3X/DAY
     Route: 048
     Dates: start: 20120312

REACTIONS (1)
  - HYPERTENSION [None]
